FAERS Safety Report 5217987-X (Version None)
Quarter: 2007Q1

REPORT INFORMATION
  Report Type: 
  Country: None (occurrence: None)
  Receive Date: 20061130
  Receipt Date: 20060922
  Transmission Date: 20070707
  Serious: Yes (Hospitalization)
  Sender: FDA-Public Use
  Company Number: US200607001177

PATIENT
  Sex: Male
  Weight: 117.9 kg

DRUGS (1)
  1. ZYPREXA [Suspect]
     Dosage: 20 MG,
     Dates: start: 20040101, end: 20050106

REACTIONS (9)
  - BLOOD CHOLESTEROL INCREASED [None]
  - BLOOD TRIGLYCERIDES INCREASED [None]
  - CHEST PAIN [None]
  - DIABETES MELLITUS [None]
  - HYPERTENSION [None]
  - METABOLIC DISORDER [None]
  - METABOLIC SYNDROME [None]
  - MYOCARDIAL ISCHAEMIA [None]
  - OBESITY [None]
